FAERS Safety Report 23403428 (Version 2)
Quarter: 2024Q1

REPORT INFORMATION
  Report Type: Spontaneous
  Country: US (occurrence: None)
  Receive Date: 20240116
  Receipt Date: 20240122
  Transmission Date: 20240410
  Serious: No
  Sender: FDA-Public Use
  Company Number: US-ROCHE-3486716

PATIENT
  Sex: Female
  Weight: 97.61 kg

DRUGS (11)
  1. OCREVUS [Suspect]
     Active Substance: OCRELIZUMAB
     Indication: Relapsing-remitting multiple sclerosis
     Route: 042
     Dates: start: 202112
  2. OZEMPIC [Suspect]
     Active Substance: SEMAGLUTIDE
     Indication: Haemoglobin
     Route: 058
     Dates: start: 202312
  3. AMANTADINE HYDROCHLORIDE [Concomitant]
     Active Substance: AMANTADINE HYDROCHLORIDE
     Indication: Fatigue
     Dosage: MORE DOSAGE INFORMATION 2 A DAY IF NEEDED
     Route: 048
     Dates: start: 2021
  4. KLOR CON M [Concomitant]
     Active Substance: POTASSIUM CHLORIDE
     Route: 048
     Dates: start: 2018
  5. BACLOFEN [Concomitant]
     Active Substance: BACLOFEN
     Indication: Muscle spasms
     Dosage: MORE DOSAGE INFORMATION 2 TABLETS AT BEDTIME AND 1/2 TABLET IN THE MORNING
     Route: 048
     Dates: start: 2019
  6. BACLOFEN [Concomitant]
     Active Substance: BACLOFEN
     Dosage: MORE DOSAGE INFORMATION 1/2 TABLET IN THE MORNING
     Route: 048
     Dates: start: 2019
  7. GABAPENTIN [Concomitant]
     Active Substance: GABAPENTIN
     Indication: Diabetic neuropathy
     Route: 048
     Dates: start: 2013
  8. GLIMEPIRIDE [Concomitant]
     Active Substance: GLIMEPIRIDE
     Route: 048
     Dates: start: 2018
  9. SIMVASTATIN [Concomitant]
     Active Substance: SIMVASTATIN
     Indication: Cerebrovascular accident
     Route: 048
  10. MODAFINIL [Concomitant]
     Active Substance: MODAFINIL
     Indication: Fatigue
     Route: 048
     Dates: start: 2019
  11. MYRBETRIQ [Concomitant]
     Active Substance: MIRABEGRON

REACTIONS (3)
  - COVID-19 [Recovering/Resolving]
  - Glycosylated haemoglobin increased [Not Recovered/Not Resolved]
  - Multiple sclerosis [Not Recovered/Not Resolved]

NARRATIVE: CASE EVENT DATE: 20231201
